FAERS Safety Report 8290822 (Version 3)
Quarter: 2013Q2

REPORT INFORMATION
  Report Type: Spontaneous
  Country: US (occurrence: None)
  Receive Date: 20111122
  Receipt Date: 20121031
  Transmission Date: 20140414
  Serious: No
  Sender: FDA-Public Use
  Company Number: PHEH2011US00776

PATIENT
  Age: 47 Year
  Sex: Female
  Weight: 56.7 kg

DRUGS (1)
  1. GILENYA [Suspect]
     Indication: MULTIPLE SCLEROSIS
     Dosage: 0.5 MG, QD, ORAL,  0.5 MG, BID, ORAL
     Route: 048
     Dates: start: 20110629

REACTIONS (15)
  - Renal disorder [None]
  - Vertigo [None]
  - Stress [None]
  - Dysphemia [None]
  - Burning sensation [None]
  - Fatigue [None]
  - Gait disturbance [None]
  - Pain [None]
  - Weight increased [None]
  - Dehydration [None]
  - Hepatic enzyme increased [None]
  - Nasopharyngitis [None]
  - Asthenia [None]
  - Overdose [None]
  - Micturition disorder [None]
